FAERS Safety Report 4399904-8 (Version None)
Quarter: 2004Q3

REPORT INFORMATION
  Report Type: 
  Country: None (occurrence: None)
  Receive Date: 20040712
  Receipt Date: 20040220
  Transmission Date: 20050211
  Serious: Yes (Death, Hospitalization)
  Sender: FDA-Public Use
  Company Number: M-04-056

PATIENT
  Age: 81 Year
  Sex: Male

DRUGS (4)
  1. AMIODARONE HCL [Suspect]
     Indication: ATRIAL FIBRILLATION
     Dosage: 200 MG QD PO
     Route: 048
     Dates: start: 20000101, end: 20040101
  2. CORGARD [Concomitant]
  3. LIPITOR [Concomitant]
  4. CARDURA [Concomitant]

REACTIONS (1)
  - PULMONARY TOXICITY [None]
